FAERS Safety Report 22353443 (Version 1)
Quarter: 2023Q2

REPORT INFORMATION
  Report Type: Spontaneous
  Country: None (occurrence: PL)
  Receive Date: 20230523
  Receipt Date: 20230523
  Transmission Date: 20230722
  Serious: Yes (Other)
  Sender: FDA-Public Use
  Company Number: PL-Therakind Limited-2141869

PATIENT
  Age: 75 Year
  Sex: Male

DRUGS (1)
  1. METHOTREXATE [Suspect]
     Active Substance: METHOTREXATE
     Indication: Squamous cell carcinoma of skin

REACTIONS (3)
  - Neutropenia [Unknown]
  - Product use in unapproved indication [Unknown]
  - Ototoxicity [Unknown]

NARRATIVE: CASE EVENT DATE: 20190101
